FAERS Safety Report 6566011-5 (Version None)
Quarter: 2010Q1

REPORT INFORMATION
  Report Type: 
  Country: None (occurrence: None)
  Receive Date: 20100129
  Receipt Date: 20100129
  Transmission Date: 20100710
  Serious: Yes (Other)
  Sender: FDA-Public Use
  Company Number: None

PATIENT
  Age: 54 Year
  Sex: Female
  Weight: 50.8029 kg

DRUGS (1)
  1. PRISTIQ [Suspect]
     Indication: DEPRESSION
     Dosage: 30 ONCE DAILY PO
     Route: 048
     Dates: start: 20090801, end: 20090802

REACTIONS (3)
  - CONVULSION [None]
  - DRUG DOSE OMISSION [None]
  - PRODUCT LABEL ISSUE [None]
